FAERS Safety Report 18295616 (Version 1)
Quarter: 2020Q3

REPORT INFORMATION
  Report Type: Spontaneous
  Country: US (occurrence: US)
  Receive Date: 20200922
  Receipt Date: 20200922
  Transmission Date: 20201103
  Serious: Yes (Hospitalization)
  Sender: FDA-Public Use
  Company Number: US-ASTRAZENECA-2020SF18665

PATIENT
  Sex: Male

DRUGS (8)
  1. ASPIRIN. [Concomitant]
     Active Substance: ASPIRIN
  2. ZESTRIL [Concomitant]
     Active Substance: LISINOPRIL
  3. XALATAN [Concomitant]
     Active Substance: LATANOPROST
  4. ZOCOR [Concomitant]
     Active Substance: SIMVASTATIN
  5. TRULICITY [Concomitant]
     Active Substance: DULAGLUTIDE
  6. FARXIGA [Suspect]
     Active Substance: DAPAGLIFLOZIN PROPANEDIOL
     Indication: DIABETES MELLITUS
     Dosage: 10.0MG UNKNOWN
     Route: 048
  7. JANUMET [Concomitant]
     Active Substance: METFORMIN HYDROCHLORIDE\SITAGLIPTIN PHOSPHATE
  8. NIZORAL [Concomitant]
     Active Substance: KETOCONAZOLE

REACTIONS (2)
  - Sepsis [Unknown]
  - Rhabdomyolysis [Unknown]
